FAERS Safety Report 9576725 (Version 1)
Quarter: 2013Q4

REPORT INFORMATION
  Report Type: Spontaneous
  Country: US (occurrence: US)
  Receive Date: 20131001
  Receipt Date: 20131001
  Transmission Date: 20140711
  Serious: Yes (Other)
  Sender: FDA-Public Use
  Company Number: US-AMGEN-USASP2013004651

PATIENT
  Age: 56 Year
  Sex: Male
  Weight: 102.4 kg

DRUGS (7)
  1. ENBREL [Suspect]
     Indication: PSORIATIC ARTHROPATHY
     Dosage: 50 MG, QWK
     Route: 058
     Dates: start: 2009
  2. ENBREL [Suspect]
     Indication: PSORIASIS
  3. ENALAPRIL [Concomitant]
     Dosage: 10 MG, UNK
  4. ATENOLOL [Concomitant]
     Dosage: 100 MG, UNK
  5. CLOBETASOL [Concomitant]
     Dosage: 0.05 %, UNK
  6. HYDROCHLOROTHIAZIDE [Concomitant]
     Dosage: 25 MG, UNK
  7. ACYCLOVIR                          /00587301/ [Concomitant]
     Dosage: 1000 MG, UNK

REACTIONS (4)
  - Ophthalmic herpes zoster [Recovered/Resolved]
  - Herpes zoster [Recovered/Resolved]
  - Formication [Recovered/Resolved]
  - Psoriasis [Unknown]
